FAERS Safety Report 5092317-5 (Version None)
Quarter: 2006Q3

REPORT INFORMATION
  Report Type: 
  Country: None (occurrence: None)
  Receive Date: 20060825
  Receipt Date: 20060808
  Transmission Date: 20061208
  Serious: Yes (Hospitalization, Other)
  Sender: FDA-Public Use
  Company Number: US200605000134

PATIENT
  Age: 78 Year
  Sex: Female
  Weight: 65.3 kg

DRUGS (4)
  1. FORTEO [Suspect]
     Indication: OSTEOPOROSIS
  2. FORTEO [Concomitant]
  3. ATENOLOL [Concomitant]
  4. ELAVIL [Concomitant]

REACTIONS (4)
  - CYSTITIS [None]
  - PYELONEPHRITIS [None]
  - URINARY TRACT INFECTION [None]
  - UROSEPSIS [None]
